FAERS Safety Report 5760929-9 (Version None)
Quarter: 2008Q2

REPORT INFORMATION
  Report Type: 
  Country: None (occurrence: None)
  Receive Date: 20080606
  Receipt Date: 20080526
  Transmission Date: 20081010
  Serious: Yes (Disabling)
  Sender: FDA-Public Use
  Company Number: FR-ROCHE-560356

PATIENT
  Sex: Female
  Weight: 48 kg

DRUGS (5)
  1. BONIVA [Suspect]
     Indication: OSTEOPOROSIS
     Dosage: FORM: INJECTABLE SOLUTION. DOSING AMOUNT: 3MG/3ML
     Route: 042
     Dates: start: 20080315, end: 20080315
  2. FUROSEMIDE [Concomitant]
     Indication: CARDIAC FAILURE
     Dosage: DRUG NAME: FUROSEMIDE 40.
     Route: 048
     Dates: start: 20000101
  3. PREDNISOLONE [Concomitant]
     Indication: ARTHRITIS
     Route: 048
     Dates: start: 19980101
  4. DEDROGYL [Concomitant]
     Indication: OSTEOPOROSIS
     Route: 048
     Dates: start: 20070101, end: 20080315
  5. ASPIRIN [Concomitant]
     Indication: TRANSIENT ISCHAEMIC ATTACK
     Dosage: DRUG NAME: KARDEGIC 75
     Route: 048
     Dates: start: 20071008

REACTIONS (1)
  - HEPATITIS CHOLESTATIC [None]
